FAERS Safety Report 17335294 (Version 2)
Quarter: 2020Q1

REPORT INFORMATION
  Report Type: Report from Study
  Country: FR (occurrence: FR)
  Receive Date: 20200128
  Receipt Date: 20200324
  Transmission Date: 20200409
  Serious: Yes (Other)
  Sender: FDA-Public Use
  Company Number: FR-EXELIXIS-XL18419025680

PATIENT
  Age: 83 Year
  Sex: Male
  Weight: 72 kg

DRUGS (11)
  1. MECIR [Concomitant]
     Active Substance: TAMSULOSIN HYDROCHLORIDE
  2. DIPROLENE [Concomitant]
     Active Substance: BETAMETHASONE DIPROPIONATE
  3. PERMIXON [Concomitant]
     Active Substance: HERBALS\SAW PALMETTO
  4. XL184 [Suspect]
     Active Substance: CABOZANTINIB
     Indication: HEPATOCELLULAR CARCINOMA
     Dosage: 40 MG, QD
     Route: 048
     Dates: start: 20190930
  5. KARDEGIC [Concomitant]
     Active Substance: ASPIRIN DL-LYSINE
  6. ATEZOLIZUMAB. [Suspect]
     Active Substance: ATEZOLIZUMAB
     Indication: HEPATOCELLULAR CARCINOMA
     Dosage: 1200 MG, Q3WEEKS
     Route: 042
     Dates: start: 20190930
  7. LANSOYL [Concomitant]
     Active Substance: MINERAL OIL
  8. LASILIX [Concomitant]
     Active Substance: FUROSEMIDE
  9. FORLAX [Concomitant]
     Active Substance: POLYETHYLENE GLYCOL 4000
  10. CHOLURSO [Concomitant]
     Active Substance: URSODIOL
  11. ENDOTELON [Concomitant]
     Active Substance: HERBALS\VITIS VINIFERA LEAF

REACTIONS (1)
  - Thrombosis [Not Recovered/Not Resolved]

NARRATIVE: CASE EVENT DATE: 20191112
